FAERS Safety Report 21955325 (Version 4)
Quarter: 2024Q1

REPORT INFORMATION
  Report Type: Report from Study
  Country: US (occurrence: US)
  Receive Date: 20230206
  Receipt Date: 20240123
  Transmission Date: 20240410
  Serious: Yes (Hospitalization, Other)
  Sender: FDA-Public Use
  Company Number: US-SUN PHARMACEUTICAL INDUSTRIES LTD-2023R1-375716

PATIENT
  Age: 63 Year
  Sex: Female

DRUGS (1)
  1. CLOZAPINE [Suspect]
     Active Substance: CLOZAPINE
     Indication: Schizoaffective disorder
     Dosage: 200 MILLIGRAM, BID
     Route: 048
     Dates: start: 2017, end: 20230114

REACTIONS (4)
  - Neutrophil count decreased [Unknown]
  - Neutropenia [Recovered/Resolved]
  - Mental disorder [Not Recovered/Not Resolved]
  - Catatonia [Unknown]

NARRATIVE: CASE EVENT DATE: 20230113
